FAERS Safety Report 6755938-7 (Version None)
Quarter: 2010Q2

REPORT INFORMATION
  Report Type: 
  Country: None (occurrence: None)
  Receive Date: 20100604
  Receipt Date: 20100531
  Transmission Date: 20101027
  Serious: Yes (Disabling)
  Sender: FDA-Public Use
  Company Number: AU-B.I. PHARMACEUTICALS,INC./RIDGEFIELD-2010-AU-00445AU

PATIENT
  Sex: Male

DRUGS (3)
  1. ASASANTIN [Suspect]
     Route: 048
  2. CRESTOR [Suspect]
     Indication: METABOLIC DISORDER
     Dosage: 20 MG
     Route: 048
  3. EZETROL [Suspect]
     Route: 048

REACTIONS (2)
  - ORTHOSTATIC HYPOTENSION [None]
  - VITREOUS FLOATERS [None]
